FAERS Safety Report 16122379 (Version 1)
Quarter: 2019Q2

REPORT INFORMATION
  Report Type: Spontaneous
  Country: US (occurrence: US)
  Receive Date: 20190326
  Receipt Date: 20190326
  Transmission Date: 20190711
  Serious: Yes (Hospitalization)
  Sender: FDA-Public Use
  Company Number: None

PATIENT
  Age: 71 Year
  Sex: Female

DRUGS (4)
  1. METOPROLOL TAR 50MG [Concomitant]
  2. PRAVASTATIN. [Concomitant]
     Active Substance: PRAVASTATIN
  3. ACYCLOVIR 400MG [Concomitant]
     Active Substance: ACYCLOVIR
  4. RAPAMUNE [Suspect]
     Active Substance: SIROLIMUS
     Indication: BONE MARROW TRANSPLANT
     Route: 048

REACTIONS (2)
  - Respiratory syncytial virus infection [None]
  - Immunosuppressant drug level increased [None]

NARRATIVE: CASE EVENT DATE: 20190325
